FAERS Safety Report 17072989 (Version 2)
Quarter: 2019Q4

REPORT INFORMATION
  Report Type: Report from Study
  Country: US (occurrence: US)
  Receive Date: 20191125
  Receipt Date: 20191219
  Transmission Date: 20200122
  Serious: Yes (Death, Hospitalization, Other)
  Sender: FDA-Public Use
  Company Number: US-TAKEDA-2019TUS067414

PATIENT
  Sex: Male

DRUGS (1)
  1. PONATINIB [Suspect]
     Active Substance: PONATINIB
     Indication: ACUTE LYMPHOCYTIC LEUKAEMIA
     Dosage: 30 MILLIGRAM, QD
     Route: 048
     Dates: start: 201812

REACTIONS (12)
  - Haemoglobin decreased [Unknown]
  - Heart valve incompetence [Unknown]
  - Cerebrovascular accident [Unknown]
  - Pain in extremity [Unknown]
  - White blood cell count abnormal [Unknown]
  - Hypotension [Unknown]
  - Renal disorder [Unknown]
  - Death [Fatal]
  - Sepsis [Unknown]
  - Peripheral swelling [Unknown]
  - Splenic infection [Unknown]
  - Arrhythmia [Unknown]
